FAERS Safety Report 23218512 (Version 1)
Quarter: 2023Q4

REPORT INFORMATION
  Report Type: Spontaneous
  Country: PT (occurrence: PT)
  Receive Date: 20231122
  Receipt Date: 20231122
  Transmission Date: 20240109
  Serious: Yes (Other)
  Sender: FDA-Public Use
  Company Number: PT-ROCHE-2801935

PATIENT
  Age: 42 Year
  Sex: Female
  Weight: 70 kg

DRUGS (24)
  1. CARBOPLATIN [Suspect]
     Active Substance: CARBOPLATIN
     Indication: HER2 positive breast cancer
     Dosage: INTRAVENOUS
     Route: 042
     Dates: start: 20200721
  2. CARBOPLATIN [Suspect]
     Active Substance: CARBOPLATIN
     Dosage: INTRAVENOUS
     Route: 042
     Dates: start: 20200908
  3. CARBOPLATIN [Suspect]
     Active Substance: CARBOPLATIN
     Dosage: INTRAVENOUS
     Route: 042
     Dates: start: 202103
  4. HERCEPTIN [Suspect]
     Active Substance: TRASTUZUMAB
     Indication: HER2 positive breast cancer
     Dosage: INTRAVENOUS?INTRAVENOUS INFUSION
     Dates: start: 20170504, end: 20180920
  5. HERCEPTIN [Suspect]
     Active Substance: TRASTUZUMAB
     Dosage: FREQUENCY: Q3W - EVERY 3 WEEKS MOST RECENT DOSE PRIOR TO THE EVENT: 13/JAN/2020
     Dates: start: 20200113
  6. PERJETA [Suspect]
     Active Substance: PERTUZUMAB
     Indication: HER2 positive breast cancer
     Dosage: INTRAVENOUS INFUSION ?INTRAVENOUS
     Dates: start: 20170504, end: 20180920
  7. GEMZAR [Suspect]
     Active Substance: GEMCITABINE HYDROCHLORIDE
     Indication: HER2 positive breast cancer
     Dosage: INTRAVENOUS
  8. GEMZAR [Suspect]
     Active Substance: GEMCITABINE HYDROCHLORIDE
     Dosage: INTRAVENOUS
     Dates: start: 20200721
  9. GEMZAR [Suspect]
     Active Substance: GEMCITABINE HYDROCHLORIDE
     Dosage: INTRAVENOUS
     Dates: start: 202103
  10. FASLODEX [Suspect]
     Active Substance: FULVESTRANT
     Indication: HER2 positive breast cancer
     Dosage: SUBCUTANEOUS
     Dates: start: 20190111, end: 20190805
  11. FASLODEX [Suspect]
     Active Substance: FULVESTRANT
     Dates: start: 20190805
  12. FASLODEX [Suspect]
     Active Substance: FULVESTRANT
     Dates: start: 20190111
  13. KADCYLA [Suspect]
     Active Substance: ADO-TRASTUZUMAB EMTANSINE
     Indication: HER2 positive breast cancer
     Dosage: INTRAVENOUS INFUSION ?INTRAVENOUS
     Dates: start: 20181130, end: 20190805
  14. KADCYLA [Suspect]
     Active Substance: ADO-TRASTUZUMAB EMTANSINE
     Dosage: INTRAVENOUS INFUSION ?INTRAVENOUS
     Dates: start: 20181130, end: 20200724
  15. NAVELBINE [Suspect]
     Active Substance: VINORELBINE TARTRATE
     Indication: HER2 positive breast cancer
     Dosage: ORAL USE
     Dates: start: 20200324
  16. NAVELBINE [Suspect]
     Active Substance: VINORELBINE TARTRATE
     Dosage: ORAL
     Dates: start: 20200113
  17. FEMARA [Suspect]
     Active Substance: LETROZOLE
     Indication: HER2 positive breast cancer
     Dosage: ORAL USE
     Dates: start: 20171124, end: 20180920
  18. TYKERB [Suspect]
     Active Substance: LAPATINIB DITOSYLATE
     Indication: HER2 positive breast cancer
     Dosage: ORAL USE
     Dates: start: 20190805
  19. TYKERB [Suspect]
     Active Substance: LAPATINIB DITOSYLATE
     Dosage: ORAL
     Dates: start: 20200113
  20. CAPECITABINE [Suspect]
     Active Substance: CAPECITABINE
     Indication: Product used for unknown indication
     Dosage: ORAL USE?TABLET (UNCOATED, ORAL)
     Dates: start: 20200113
  21. CAPECITABINE [Suspect]
     Active Substance: CAPECITABINE
     Dosage: ORAL USE?TABLET (UNCOATED, ORAL)
     Dates: start: 20190805
  22. TAXOTERE [Suspect]
     Active Substance: DOCETAXEL
     Indication: HER2 positive breast cancer
     Dosage: EVERY 3 WEEKS MOST RECENT DOSE PRIOR TO THE EVENT: 26/MAR/2020
     Dates: start: 20200326
  23. TAXOTERE [Suspect]
     Active Substance: DOCETAXEL
     Dosage: INTRAVENOUS
     Dates: start: 20170504, end: 20170922
  24. ESCITALOPRAM [Concomitant]
     Active Substance: ESCITALOPRAM OXALATE
     Indication: Product used for unknown indication
     Dates: start: 20180505

REACTIONS (6)
  - Pleural effusion [Recovered/Resolved]
  - Neutropenia [Recovered/Resolved]
  - Neutropenia [Recovered/Resolved]
  - Neutropenia [Unknown]
  - Hepatotoxicity [Unknown]
  - Anaemia [Unknown]

NARRATIVE: CASE EVENT DATE: 20200724
